FAERS Safety Report 19023849 (Version 1)
Quarter: 2021Q1

REPORT INFORMATION
  Report Type: Spontaneous
  Country: DE (occurrence: DE)
  Receive Date: 20210318
  Receipt Date: 20210318
  Transmission Date: 20210420
  Serious: Yes (Life-Threatening, Hospitalization)
  Sender: FDA-Public Use
  Company Number: DE-TEVA-2021-DE-1890550

PATIENT
  Age: 54 Year
  Sex: Female

DRUGS (8)
  1. NOREPINEPHRINE. [Suspect]
     Active Substance: NOREPINEPHRINE
     Indication: CARDIOGENIC SHOCK
     Route: 065
  2. AMLODIPINE [Suspect]
     Active Substance: AMLODIPINE BESYLATE
     Indication: SUICIDE ATTEMPT
     Route: 048
  3. BISOPROLOL [Suspect]
     Active Substance: BISOPROLOL
     Indication: SUICIDE ATTEMPT
     Route: 048
  4. EPINEPHRINE. [Suspect]
     Active Substance: EPINEPHRINE
     Indication: CARDIOGENIC SHOCK
     Route: 065
  5. VASOPRESSIN. [Suspect]
     Active Substance: VASOPRESSIN
     Indication: CARDIOGENIC SHOCK
     Route: 065
  6. GLUCAGON. [Suspect]
     Active Substance: GLUCAGON
     Indication: BLOOD GLUCAGON
     Route: 042
  7. LEVOSIMENDAN [Suspect]
     Active Substance: LEVOSIMENDAN
     Indication: CARDIOGENIC SHOCK
     Route: 065
  8. CHARCOAL [Suspect]
     Active Substance: ACTIVATED CHARCOAL
     Indication: TOXICITY TO VARIOUS AGENTS
     Route: 065

REACTIONS (9)
  - Hypothermia [Unknown]
  - Haemodynamic instability [Recovered/Resolved]
  - Pulseless electrical activity [Recovered/Resolved]
  - Renal impairment [Recovering/Resolving]
  - Toxicity to various agents [Recovering/Resolving]
  - Respiratory failure [Unknown]
  - Cardiogenic shock [Recovered/Resolved]
  - Intentional overdose [Unknown]
  - Suicide attempt [Unknown]
